FAERS Safety Report 24736106 (Version 1)
Quarter: 2024Q4

REPORT INFORMATION
  Report Type: Spontaneous
  Country: IT (occurrence: IT)
  Receive Date: 20241216
  Receipt Date: 20241216
  Transmission Date: 20250114
  Serious: Yes (Hospitalization, Other)
  Sender: SANDOZ
  Company Number: IT-NOVPHSZ-PHHY2018IT049843

PATIENT
  Age: 86 Year
  Sex: Male

DRUGS (3)
  1. CIPROFLOXACIN [Suspect]
     Active Substance: CIPROFLOXACIN
     Indication: Intentional overdose
     Dosage: 500 MG (SIX TIMES IN ONE INTAKE)
     Route: 048
     Dates: start: 20180424, end: 20180424
  2. NORVASC [Suspect]
     Active Substance: AMLODIPINE BESYLATE
     Indication: Intentional overdose
     Dosage: 5 MG, (14 TIMES IN ONE INTAKE)
     Route: 048
     Dates: start: 20180424, end: 20180424
  3. FERROUS SULFATE [Suspect]
     Active Substance: FERROUS SULFATE
     Indication: Intentional overdose
     Dosage: 80 MG (9 TIMES IN ONE INTAKE)
     Route: 048
     Dates: start: 20180424, end: 20180424

REACTIONS (5)
  - Haematemesis [Unknown]
  - Blood iron increased [Recovering/Resolving]
  - Intentional overdose [Unknown]
  - Gastritis erosive [Unknown]
  - Sluggishness [Unknown]

NARRATIVE: CASE EVENT DATE: 20180424
